FAERS Safety Report 10716838 (Version 2)
Quarter: 2015Q1

REPORT INFORMATION
  Report Type: Report from Study
  Country: DE (occurrence: NL)
  Receive Date: 20150116
  Receipt Date: 20150212
  Transmission Date: 20150721
  Serious: Yes (Death)
  Sender: FDA-Public Use
  Company Number: DE-ACTELION-A-NJ2015-111248

PATIENT
  Age: 68 Year
  Sex: Female

DRUGS (13)
  1. CRESTOR [Concomitant]
     Active Substance: ROSUVASTATIN CALCIUM
  2. ARANESP [Concomitant]
     Active Substance: DARBEPOETIN ALFA
  3. ALFACALCIDOL [Concomitant]
     Active Substance: ALFACALCIDOL
  4. CHLORTHALIDONE. [Concomitant]
     Active Substance: CHLORTHALIDONE
  5. ENALAPRIL [Concomitant]
     Active Substance: ENALAPRIL
  6. FUROSEMIDE. [Concomitant]
     Active Substance: FUROSEMIDE
  7. METOPROLOL [Concomitant]
     Active Substance: METOPROLOL
  8. SLOW K [Concomitant]
     Active Substance: POTASSIUM CHLORIDE
  9. VENTAVIS [Suspect]
     Active Substance: ILOPROST
     Indication: PRODUCT USED FOR UNKNOWN INDICATION
     Dosage: UNK
     Route: 055
     Dates: start: 20120425
  10. ESOMEPRAZOL [Concomitant]
     Active Substance: ESOMEPRAZOLE
  11. TRACLEER [Concomitant]
     Active Substance: BOSENTAN\BOSENTAN MONOHYDRATE
     Indication: PULMONARY ARTERIAL HYPERTENSION
  12. REVATIO [Concomitant]
     Active Substance: SILDENAFIL CITRATE
  13. FERRO FUMARAT [Concomitant]

REACTIONS (1)
  - Cardiac arrest [Fatal]

NARRATIVE: CASE EVENT DATE: 20150112
